FAERS Safety Report 5322673-1 (Version None)
Quarter: 2007Q2

REPORT INFORMATION
  Report Type: 
  Country: None (occurrence: None)
  Receive Date: 20070507
  Receipt Date: 20070427
  Transmission Date: 20071010
  Serious: Yes (Hospitalization, Other)
  Sender: FDA-Public Use
  Company Number: THYM-11349

PATIENT
  Age: 55 Year
  Sex: Male

DRUGS (8)
  1. THYMOGLOBULIN [Suspect]
     Indication: PANCREAS TRANSPLANT
     Dosage: 100 MG QD IV
     Route: 042
     Dates: start: 20050214, end: 20050214
  2. THYMOGLOBULIN [Suspect]
     Indication: PANCREAS TRANSPLANT
     Dosage: 100 MG QOD IV
     Route: 042
     Dates: start: 20070218, end: 20070222
  3. MYCELEX. MFR: MILES CONSUMER PRODUCTS [Concomitant]
  4. VALACYCLOVIR [Concomitant]
  5. LISINOPRIL [Concomitant]
  6. PROGRAF. MFR. FUJISAWA PHARM [Concomitant]
  7. CELLCEPT. MFR: ROCHE [Concomitant]
  8. PREDNISONE TAB [Concomitant]

REACTIONS (1)
  - SERUM SICKNESS [None]
